FAERS Safety Report 8735941 (Version 3)
Quarter: 2012Q4

REPORT INFORMATION
  Report Type: 
  Country: US (occurrence: US)
  Receive Date: 20120822
  Receipt Date: 20121004
  Transmission Date: 20130627
  Serious: Yes (Hospitalization)
  Sender: FDA-Public Use
  Company Number: US-PFIZER INC-2012201083

PATIENT
  Age: 88 Year
  Sex: Male
  Weight: 81.63 kg

DRUGS (5)
  1. LYRICA [Suspect]
     Indication: NEUROPATHY PERIPHERAL
     Dosage: 75 mg, 2x/day
     Dates: start: 2007
  2. LYRICA [Suspect]
     Dosage: 75 mg, 2x/day
  3. LEVOTHYROXINE [Concomitant]
     Dosage: 25 mg, daily
  4. FUROSEMIDE [Concomitant]
     Indication: MICTURITION DISORDER
     Dosage: 20 mg, daily
  5. TAMSULOSIN [Concomitant]
     Indication: MICTURITION DISORDER
     Dosage: 4 mg, daily

REACTIONS (4)
  - Hernia [Recovering/Resolving]
  - Nasopharyngitis [Recovered/Resolved]
  - Oropharyngeal pain [Recovered/Resolved]
  - Expired drug administered [Unknown]
